FAERS Safety Report 7139519-1 (Version None)
Quarter: 2010Q4

REPORT INFORMATION
  Report Type: 
  Country: None (occurrence: None)
  Receive Date: 20101206
  Receipt Date: 20101130
  Transmission Date: 20110411
  Serious: Yes (Hospitalization, Other)
  Sender: FDA-Public Use
  Company Number: US-AMGEN GMBH-QUU418411

PATIENT

DRUGS (8)
  1. NPLATE [Suspect]
     Indication: IDIOPATHIC THROMBOCYTOPENIC PURPURA
     Dosage: 7 A?G, UNK
     Route: 058
     Dates: start: 20070829, end: 20091209
  2. NPLATE [Suspect]
     Dosage: 7 A?G, UNK
     Route: 058
     Dates: start: 20100201, end: 20100412
  3. NPLATE [Suspect]
     Dosage: 8 A?G, UNK
     Route: 058
     Dates: start: 20100419, end: 20100419
  4. NPLATE [Suspect]
     Dosage: 9 A?G, UNK
     Dates: start: 20100426
  5. NPLATE [Suspect]
     Dosage: UNK
     Dates: start: 20101230
  6. HYDROCODONE BITARTRATE AND ACETAMINOPHEN [Concomitant]
     Indication: PRODUCT USED FOR UNKNOWN INDICATION
     Dosage: UNK UNK, PRN
     Route: 048
     Dates: start: 20071023
  7. LENALIDOMIDE [Concomitant]
     Indication: PRODUCT USED FOR UNKNOWN INDICATION
     Dosage: 10 MG, QD
     Route: 048
     Dates: start: 20100601
  8. PREDNISONE [Concomitant]
     Indication: PRODUCT USED FOR UNKNOWN INDICATION
     Dosage: UNK UNK, UNK
     Dates: start: 20100121

REACTIONS (8)
  - 5Q MINUS SYNDROME [None]
  - ANXIETY [None]
  - BILE DUCT CANCER [None]
  - BILOMA [None]
  - HYPOVOLAEMIA [None]
  - MALAISE [None]
  - THERAPEUTIC RESPONSE DECREASED [None]
  - WEIGHT DECREASED [None]
